FAERS Safety Report 4745051-2 (Version None)
Quarter: 2005Q3

REPORT INFORMATION
  Report Type: 
  Country: None (occurrence: None)
  Receive Date: 20050811
  Receipt Date: 20050726
  Transmission Date: 20060218
  Serious: Yes (Other)
  Sender: FDA-Public Use
  Company Number: 2005BL004555

PATIENT
  Age: 86 Year
  Sex: Female

DRUGS (2)
  1. GENTAMICIN SULFATE [Suspect]
     Indication: OCULAR HYPERAEMIA
     Dosage: OPHTHALMIC
     Route: 047
     Dates: start: 20050401, end: 20050101
  2. GENTAMICIN SULFATE [Suspect]
     Indication: PROPHYLAXIS
     Dosage: OPHTHALMIC
     Route: 047
     Dates: start: 20050401, end: 20050101

REACTIONS (5)
  - DRY EYE [None]
  - EYE DISORDER [None]
  - OCULAR DISCOMFORT [None]
  - SUPERFICIAL INJURY OF EYE [None]
  - VISION BLURRED [None]
